FAERS Safety Report 7689002-X (Version None)
Quarter: 2011Q3

REPORT INFORMATION
  Report Type: 
  Country: None (occurrence: None)
  Receive Date: 20110817
  Receipt Date: 20110816
  Transmission Date: 20111222
  Serious: Yes (Death, Hospitalization, Other)
  Sender: FDA-Public Use
  Company Number: PHEH2009US14732

PATIENT
  Sex: Female

DRUGS (5)
  1. VALIUM [Concomitant]
  2. ESTRADERM [Suspect]
     Route: 062
     Dates: start: 19930408, end: 19961201
  3. AMBIEN [Concomitant]
  4. ADVAIR DISKUS 100/50 [Concomitant]
  5. PROZAC [Concomitant]

REACTIONS (16)
  - ADENOCARCINOMA [None]
  - ABDOMINAL PAIN UPPER [None]
  - DYSPNOEA EXERTIONAL [None]
  - CHEST PAIN [None]
  - ANXIETY [None]
  - INJURY [None]
  - ANKLE FRACTURE [None]
  - DEPRESSION [None]
  - METASTASES TO LIVER [None]
  - PNEUMOTHORAX [None]
  - PAIN [None]
  - CHRONIC OBSTRUCTIVE PULMONARY DISEASE [None]
  - INSOMNIA [None]
  - DEATH [None]
  - BLADDER CANCER [None]
  - BREAST CANCER [None]
